FAERS Safety Report 11479969 (Version 1)
Quarter: 2015Q3

REPORT INFORMATION
  Report Type: Other
  Country: US (occurrence: US)
  Receive Date: 20150909
  Receipt Date: 20150909
  Transmission Date: 20151125
  Serious: Yes (Disabling)
  Sender: FDA-Public Use
  Company Number: US-NSR_02245_2015

PATIENT
  Sex: Male
  Weight: 141 kg

DRUGS (4)
  1. TRAMADOL. [Suspect]
     Active Substance: TRAMADOL
     Indication: SPINAL PAIN
     Route: 048
     Dates: start: 2014
  2. BC [Suspect]
     Active Substance: ASPIRIN\CAFFEINE
     Indication: INFLAMMATION
     Dosage: ONE TO TWO PACKETS; DAILY
     Dates: start: 2006
  3. LYRICA [Suspect]
     Active Substance: PREGABALIN
     Indication: SPINAL PAIN
     Route: 048
     Dates: start: 201401
  4. LYRICA [Suspect]
     Active Substance: PREGABALIN
     Dates: start: 201311, end: 201401

REACTIONS (5)
  - Activities of daily living impaired [Not Recovered/Not Resolved]
  - Pain [Not Recovered/Not Resolved]
  - Product quality issue [Not Recovered/Not Resolved]
  - Bruxism [Not Recovered/Not Resolved]
  - Drug effect incomplete [Not Recovered/Not Resolved]

NARRATIVE: CASE EVENT DATE: 2014
